FAERS Safety Report 8111827-7 (Version None)
Quarter: 2012Q1

REPORT INFORMATION
  Report Type: 
  Country: None (occurrence: None)
  Receive Date: 20120203
  Receipt Date: 20120124
  Transmission Date: 20120608
  Serious: Yes (Hospitalization)
  Sender: FDA-Public Use
  Company Number: BE-ABBOTT-12P-013-0889614-00

PATIENT
  Sex: Female
  Weight: 47 kg

DRUGS (8)
  1. HUMIRA [Suspect]
     Indication: CROHN'S DISEASE
     Route: 058
     Dates: start: 20080328, end: 20080617
  2. METHOTREXATE [Concomitant]
     Indication: CROHN'S DISEASE
     Dates: start: 20080617, end: 20100602
  3. HUMIRA [Suspect]
     Route: 058
     Dates: start: 20100602, end: 20110727
  4. HUMIRA [Suspect]
     Route: 058
     Dates: start: 20110908
  5. LENDORMIN [Concomitant]
     Indication: INSOMNIA
     Dates: start: 20040801
  6. FOLIC ACID [Concomitant]
     Indication: PROPHYLAXIS
     Dates: start: 20080617, end: 20100602
  7. PRAZEPAM [Concomitant]
     Indication: ANXIETY
     Dates: start: 20040801
  8. OMEPRAZOLE [Concomitant]
     Indication: ABDOMINAL PAIN UPPER
     Dates: start: 20050101

REACTIONS (1)
  - INTESTINAL STENOSIS [None]
